FAERS Safety Report 25359028 (Version 1)
Quarter: 2025Q2

REPORT INFORMATION
  Report Type: Report from Study
  Country: US (occurrence: US)
  Receive Date: 20250526
  Receipt Date: 20250526
  Transmission Date: 20250716
  Serious: Yes (Other)
  Sender: MALLINCKRODT
  Company Number: US-MALLINCKRODT-MNK202404742

PATIENT
  Age: 63 Year
  Sex: Female

DRUGS (8)
  1. CORTICOTROPIN [Suspect]
     Active Substance: CORTICOTROPIN
     Indication: Rheumatoid arthritis
  2. CORTICOTROPIN [Suspect]
     Active Substance: CORTICOTROPIN
     Indication: Rheumatoid arthritis
     Dates: start: 202410
  3. CORTICOTROPIN [Suspect]
     Active Substance: CORTICOTROPIN
     Dates: start: 202412
  4. CORTICOTROPIN [Suspect]
     Active Substance: CORTICOTROPIN
  5. CORTICOTROPIN [Suspect]
     Active Substance: CORTICOTROPIN
  6. METHOTREXATE [Concomitant]
     Active Substance: METHOTREXATE
     Indication: Rheumatoid arthritis
  7. METHOTREXATE [Concomitant]
     Active Substance: METHOTREXATE
  8. HYDROXYCHLOROQUINE DIPHOSPHATE [Concomitant]
     Active Substance: HYDROXYCHLOROQUINE DIPHOSPHATE
     Indication: Rheumatoid arthritis

REACTIONS (2)
  - Rheumatoid arthritis [Not Recovered/Not Resolved]
  - Tuberculosis [Recovering/Resolving]

NARRATIVE: CASE EVENT DATE: 20240601
